FAERS Safety Report 11315498 (Version 2)
Quarter: 2015Q3

REPORT INFORMATION
  Report Type: Spontaneous
  Country: IT (occurrence: IT)
  Receive Date: 20150728
  Receipt Date: 20150806
  Transmission Date: 20151125
  Serious: Yes (Hospitalization)
  Sender: FDA-Public Use
  Company Number: IT-ROCHE-1609216

PATIENT
  Age: 20 Year
  Sex: Male

DRUGS (2)
  1. PEGINTERFERON ALFA-2B [Suspect]
     Active Substance: PEGINTERFERON ALFA-2B
     Indication: HEPATITIS C
     Route: 065
     Dates: start: 200404
  2. RIBAVIRIN. [Suspect]
     Active Substance: RIBAVIRIN
     Indication: HEPATITIS C
     Route: 065
     Dates: start: 200404

REACTIONS (6)
  - Gingival bleeding [Recovered/Resolved]
  - Influenza like illness [Unknown]
  - Epistaxis [Recovered/Resolved]
  - Petechiae [Recovered/Resolved]
  - Immune thrombocytopenic purpura [Recovered/Resolved]
  - Haematoma [Recovered/Resolved]
